FAERS Safety Report 12353099 (Version 1)
Quarter: 2016Q2

REPORT INFORMATION
  Report Type: Spontaneous
  Country: US (occurrence: US)
  Receive Date: 20160510
  Receipt Date: 20160510
  Transmission Date: 20160815
  Serious: Yes (Other)
  Sender: FDA-Public Use
  Company Number: ADR-2015-01509

PATIENT
  Age: 24 Year
  Sex: Male

DRUGS (3)
  1. LIORESAL [Suspect]
     Active Substance: BACLOFEN
     Dosage: 719.2 MCG/DAY
     Route: 037
     Dates: start: 20150429, end: 20150731
  2. COLLAGENASE [Suspect]
     Active Substance: COLLAGENASE CLOSTRIDIUM HISTOLYTICUM
  3. BACLOFEN. [Suspect]
     Active Substance: BACLOFEN
     Route: 048

REACTIONS (2)
  - Staphylococcus test positive [Recovered/Resolved]
  - Implant site infection [Recovered/Resolved]
